FAERS Safety Report 4619689-7 (Version None)
Quarter: 2005Q1

REPORT INFORMATION
  Report Type: 
  Country: None (occurrence: None)
  Receive Date: 20050317
  Receipt Date: 20050317
  Transmission Date: 20050727
  Serious: Yes (Hospitalization)
  Sender: FDA-Public Use
  Company Number: None

PATIENT
  Age: 70 Year
  Sex: Male

DRUGS (19)
  1. DEXAMETHASONE [Suspect]
     Indication: GOUTY ARTHRITIS
     Dosage: 40MG PO QD
     Route: 048
     Dates: start: 20040922, end: 20041015
  2. DEXAMETHASONE [Suspect]
     Indication: METASTASES TO BONE
     Dosage: 40MG PO QD
     Route: 048
     Dates: start: 20040922, end: 20041015
  3. ACETAMINOPHEN AND CODEINE PHOSPHATE [Concomitant]
  4. ACETAMINOPHEN [Concomitant]
  5. ALLOPURINOL [Concomitant]
  6. BICALUTAMIDE [Concomitant]
  7. BISACODYL 10MG RCTL SUPP, [Concomitant]
  8. BISACODYL  5MG TABS [Concomitant]
  9. CHLORHEXIDINE GLU. ORAL RINSE [Concomitant]
  10. COLCHICINE [Concomitant]
  11. DEXAMETHASONE [Concomitant]
  12. DOCUSATE NA [Concomitant]
  13. DORZOLAMIDE / TIMOLOL [Concomitant]
  14. FELODIPINE [Concomitant]
  15. FERROUS SULFATE TAB [Concomitant]
  16. MORPHINE SULFATE [Concomitant]
  17. MULTI-VITAMIN [Concomitant]
  18. OXYCODONE / ACETAMIN. [Concomitant]
  19. PROLMETHAZINE HCL [Concomitant]

REACTIONS (4)
  - CHOREA [None]
  - DIABETIC KETOACIDOSIS [None]
  - METABOLIC DISORDER [None]
  - MYOCLONUS [None]
